APPROVED DRUG PRODUCT: PEMETREXED
Active Ingredient: PEMETREXED DISODIUM
Strength: EQ 1GM/100ML BASE (10MG/ML)
Dosage Form/Route: SOLUTION;INTRAVENOUS
Application: N215179 | Product #003
Applicant: SHILPA MEDICARE LTD
Approved: May 22, 2023 | RLD: Yes | RS: Yes | Type: RX

PATENTS:
Patent 11147817 | Expires: Mar 26, 2035